FAERS Safety Report 5834737-4 (Version None)
Quarter: 2008Q3

REPORT INFORMATION
  Report Type: 
  Country: None (occurrence: None)
  Receive Date: 20080801
  Receipt Date: 20080717
  Transmission Date: 20090109
  Serious: Yes (Death)
  Sender: FDA-Public Use
  Company Number: 2008AL008863

PATIENT
  Age: 77 Year
  Sex: Male

DRUGS (7)
  1. MELOXICAM [Suspect]
     Dosage: 15 MG; UNKNOWN; PO
     Route: 048
     Dates: start: 20050101
  2. CO-CODAMOL [Concomitant]
  3. COMBIVENT [Concomitant]
  4. FUROSEMIDE [Concomitant]
  5. RAMIPRIL [Concomitant]
  6. PARACETAMOL [Concomitant]
  7. CEPHALEXIN [Concomitant]

REACTIONS (7)
  - ARTERIOSCLEROSIS CORONARY ARTERY [None]
  - CORONARY ARTERY OCCLUSION [None]
  - LEFT VENTRICULAR HYPERTROPHY [None]
  - PULMONARY CONGESTION [None]
  - PULMONARY OEDEMA [None]
  - RENAL ARTERY ARTERIOSCLEROSIS [None]
  - RENAL ATROPHY [None]
